FAERS Safety Report 6526389-5 (Version None)
Quarter: 2009Q4

REPORT INFORMATION
  Report Type: 
  Country: None (occurrence: None)
  Receive Date: 20091229
  Receipt Date: 20091216
  Transmission Date: 20100525
  Serious: Yes (Hospitalization)
  Sender: FDA-Public Use
  Company Number: 2006-149909-NL

PATIENT
  Age: 44 Year
  Sex: Female
  Weight: 99.8 kg

DRUGS (1)
  1. NUVARING [Suspect]
     Indication: CONTRACEPTION
     Dates: start: 20060101, end: 20061021

REACTIONS (1)
  - MYOCARDIAL INFARCTION [None]
